FAERS Safety Report 15306102 (Version 2)
Quarter: 2018Q3

REPORT INFORMATION
  Report Type: Spontaneous
  Country: US (occurrence: US)
  Receive Date: 20180822
  Receipt Date: 20180910
  Transmission Date: 20181010
  Serious: Yes (Hospitalization)
  Sender: FDA-Public Use
  Company Number: US-PFIZER INC-2018329268

PATIENT
  Age: 67 Year
  Sex: Female
  Weight: 111.57 kg

DRUGS (3)
  1. SPIRONOLACTONE. [Suspect]
     Active Substance: SPIRONOLACTONE
     Dosage: UNK UNK, DAILY  (1+1/2 DAILY)
     Dates: start: 20180807, end: 20180824
  2. SPIRONOLACTONE ACCORD [Suspect]
     Active Substance: SPIRONOLACTONE
     Indication: HYPERTENSION
     Dosage: 75 MG, DAILY, (50 MG TABLETS?1.5 TABLETS)
     Route: 048
     Dates: start: 20180803, end: 20180814
  3. SPIRONOLACTONE ACCORD [Suspect]
     Active Substance: SPIRONOLACTONE
     Indication: FLUID RETENTION

REACTIONS (17)
  - Depression [Not Recovered/Not Resolved]
  - Headache [Recovered/Resolved]
  - Neck pain [Recovered/Resolved]
  - Arthritis [Recovered/Resolved]
  - Mental status changes [Recovered/Resolved]
  - Anger [Not Recovered/Not Resolved]
  - Back pain [Recovered/Resolved]
  - Feeling abnormal [Recovered/Resolved]
  - Memory impairment [Recovered/Resolved]
  - Dizziness [Recovered/Resolved]
  - Muscle spasms [Recovered/Resolved]
  - Somnolence [Recovered/Resolved]
  - Fibromyalgia [Recovered/Resolved]
  - Condition aggravated [Recovered/Resolved]
  - Abdominal discomfort [Recovered/Resolved]
  - Nausea [Recovered/Resolved]
  - Diarrhoea [Recovered/Resolved]

NARRATIVE: CASE EVENT DATE: 2018
